FAERS Safety Report 9213245 (Version 1)
Quarter: 2013Q1

REPORT INFORMATION
  Report Type: Spontaneous
  Country: US (occurrence: None)
  Receive Date: 20120827
  Receipt Date: 20120827
  Transmission Date: 20140127
  Serious: No
  Sender: FDA-Public Use
  Company Number: 356067

PATIENT
  Sex: Male

DRUGS (3)
  1. VICTOZA ( LIRAGLUTIDE) SOLUTION FOR INJECTION, 6MG/ML [Suspect]
     Indication: PRODUCT USED FOR UNKNOWN INDICATION
     Route: 058
  2. NOVOLOG MIX 70/30 ( INSULIN ASPART) SUSPENSION FOR INJECTION, 100 U/ML [Concomitant]
  3. LEVEMIR ( INSULIN DETEMIR) SOLUTION FOR INJECTION, .0024 MOL/L [Concomitant]

REACTIONS (1)
  - Drug ineffective [None]
